FAERS Safety Report 9291081 (Version 1)
Quarter: 2013Q2

REPORT INFORMATION
  Report Type: Report from Study
  Country: PT (occurrence: PT)
  Receive Date: 20130515
  Receipt Date: 20130515
  Transmission Date: 20140414
  Serious: Yes (Other)
  Sender: FDA-Public Use
  Company Number: PT-BAYER-2013-059981

PATIENT
  Age: 41 Year
  Sex: Female

DRUGS (1)
  1. EXTAVIA [Suspect]
     Indication: MULTIPLE SCLEROSIS
     Dosage: 1 UNK, UNK
     Dates: start: 20120502

REACTIONS (4)
  - Multiple sclerosis relapse [Recovering/Resolving]
  - Hypoaesthesia [Recovering/Resolving]
  - Burning sensation [Recovering/Resolving]
  - Insomnia [None]
